FAERS Safety Report 7828847 (Version 3)
Quarter: 2012Q4

REPORT INFORMATION
  Report Type: Report from Study
  Country: ES (occurrence: ES)
  Receive Date: 20110225
  Receipt Date: 20121011
  Transmission Date: 20130627
  Serious: Yes (Other)
  Sender: FDA-Public Use
  Company Number: ES-BRISTOL-MYERS SQUIBB COMPANY-15562382

PATIENT
  Age: 67 Year
  Sex: Male
  Weight: 70 kg

DRUGS (5)
  1. CISPLATIN [Suspect]
     Indication: NON-SMALL CELL LUNG CANCER
     Dosage: last received on 18Jan2011 (5th inf)
     Route: 065
     Dates: start: 20101022, end: 20110118
  2. NECITUMUMAB [Suspect]
     Indication: NON-SMALL CELL LUNG CANCER
     Dosage: Liquid, last received on 25Jan2011 (10th inf)
     Route: 065
     Dates: start: 20101022, end: 20110125
  3. ALIMTA [Suspect]
     Indication: NON-SMALL CELL LUNG CANCER
     Dosage: Vial;last received on 18Jan2011 (5th inf)
     Route: 065
     Dates: start: 20101022, end: 20110118
  4. FOLIC ACID [Concomitant]
  5. VITAMIN B12 [Concomitant]

REACTIONS (1)
  - Arterial disorder [Not Recovered/Not Resolved]
